FAERS Safety Report 7284334-1 (Version None)
Quarter: 2011Q1

REPORT INFORMATION
  Report Type: 
  Country: None (occurrence: None)
  Receive Date: 20110209
  Receipt Date: 20110131
  Transmission Date: 20110831
  Serious: Yes (Death)
  Sender: FDA-Public Use
  Company Number: SE-PFIZER INC-2011022894

PATIENT
  Age: 85 Year
  Sex: Male
  Weight: 76 kg

DRUGS (15)
  1. EMCONCOR [Suspect]
     Dosage: 1.25 MG, UNK
     Route: 048
     Dates: start: 20090409, end: 20090430
  2. ALFADIL [Suspect]
     Indication: BENIGN PROSTATIC HYPERPLASIA
     Dosage: 4 MG, 1X/DAY
     Route: 048
     Dates: start: 20070326, end: 20090505
  3. PREDNISOLONE [Suspect]
     Dosage: 30MG DAILY WITH REDUCTIVE DOSE 5MG/DAY
     Dates: start: 20090227
  4. ZOPIKLON NM PHARMA [Concomitant]
     Dosage: 5 MG, UNK
     Route: 048
     Dates: start: 20090505
  5. PRAMACE [Suspect]
     Dosage: 1.25 MG, 1X/DAY
     Route: 048
     Dates: start: 20090409
  6. TROMBYL [Concomitant]
     Dosage: 300 MG, 1X/DAY
     Route: 048
     Dates: start: 20090403
  7. VELCADE [Suspect]
     Indication: MULTIPLE MYELOMA
     Dosage: 2.4 MG, TWO TIMES A WEEK FOR 2 WEEKS
     Route: 042
     Dates: start: 20090420, end: 20090522
  8. PLAVIX [Concomitant]
     Dosage: 300 MG, 1X/DAY
     Route: 048
     Dates: start: 20090403, end: 20090403
  9. HEPARIN [Concomitant]
     Dosage: 4000 IU, 1X/DAY
     Route: 042
     Dates: start: 20090403, end: 20090403
  10. AVODART [Concomitant]
     Dosage: 0.5 MG, 1X/DAY
     Route: 048
     Dates: start: 20090401
  11. WARAN [Concomitant]
     Dosage: 2.5 MG, UNK
     Route: 048
     Dates: start: 20090409, end: 20090427
  12. LUNELAX [Concomitant]
     Dosage: 2 DF, 2X/DAY
     Route: 048
     Dates: start: 20081119
  13. ALVEDON [Concomitant]
     Dosage: 500 MG, UNK
     Route: 048
     Dates: start: 20080505
  14. FRAGMIN [Concomitant]
     Dosage: 15000 IU, 1X/DAY
     Route: 058
     Dates: start: 20090422, end: 20090522
  15. FURIX [Concomitant]
     Dosage: 40 MG, 1X/DAY
     Route: 048
     Dates: start: 20090427

REACTIONS (4)
  - CARDIOVASCULAR INSUFFICIENCY [None]
  - HYPOTENSION [None]
  - PULMONARY OEDEMA [None]
  - CARDIAC FAILURE [None]
